FAERS Safety Report 7395544-7 (Version None)
Quarter: 2011Q2

REPORT INFORMATION
  Report Type: 
  Country: None (occurrence: None)
  Receive Date: 20110405
  Receipt Date: 20110322
  Transmission Date: 20111010
  Serious: Yes (Hospitalization)
  Sender: FDA-Public Use
  Company Number: PHHY2011US23810

PATIENT
  Sex: Female
  Weight: 53 kg

DRUGS (13)
  1. KEPPRA [Concomitant]
  2. LEVAQUIN [Concomitant]
  3. ZONEGRAN [Concomitant]
  4. ASCORBIC ACID [Concomitant]
  5. CALCIUM [Concomitant]
  6. MIRALAX [Concomitant]
  7. ATIVAN [Concomitant]
  8. EXJADE [Suspect]
     Indication: SICKLE CELL ANAEMIA
     Dosage: 1500 MG, DAILY
     Route: 048
     Dates: start: 20080201
  9. PRILOSEC [Concomitant]
  10. HYDREA [Concomitant]
  11. PREDNISONE [Concomitant]
  12. VITAMIN B [Concomitant]
  13. TRILEPTAL [Concomitant]

REACTIONS (3)
  - PAIN IN EXTREMITY [None]
  - LIMB DISCOMFORT [None]
  - BACK PAIN [None]
